FAERS Safety Report 16275686 (Version 1)
Quarter: 2019Q2

REPORT INFORMATION
  Report Type: Spontaneous
  Country: GB (occurrence: GB)
  Receive Date: 20190506
  Receipt Date: 20190506
  Transmission Date: 20190711
  Serious: Yes (Other)
  Sender: FDA-Public Use
  Company Number: GB-GLAXOSMITHKLINE-GB2019078042

PATIENT
  Age: 25 Year
  Sex: Female
  Weight: 57 kg

DRUGS (1)
  1. ACICLOVIR [Suspect]
     Active Substance: ACYCLOVIR
     Indication: GENITAL HERPES
     Dosage: 1200 MG, QD
     Route: 048
     Dates: start: 20190330, end: 20190405

REACTIONS (5)
  - Headache [Unknown]
  - Abnormal behaviour [Unknown]
  - Depression [Not Recovered/Not Resolved]
  - Insomnia [Not Recovered/Not Resolved]
  - Agitation [Not Recovered/Not Resolved]

NARRATIVE: CASE EVENT DATE: 20190401
